FAERS Safety Report 9558954 (Version 2)
Quarter: 2013Q4

REPORT INFORMATION
  Report Type: Spontaneous
  Country: US (occurrence: US)
  Receive Date: 20130927
  Receipt Date: 20131031
  Transmission Date: 20140711
  Serious: Yes (Death)
  Sender: FDA-Public Use
  Company Number: US-BIOGENIDEC-2013BI092968

PATIENT
  Sex: Female

DRUGS (1)
  1. AVONEX [Suspect]
     Indication: MULTIPLE SCLEROSIS
     Route: 030
     Dates: start: 20130522

REACTIONS (4)
  - Head injury [Fatal]
  - Mobility decreased [Recovered/Resolved]
  - Asthenia [Recovered/Resolved]
  - Drug effect decreased [Recovered/Resolved]
